FAERS Safety Report 22400266 (Version 1)
Quarter: 2023Q2

REPORT INFORMATION
  Report Type: Spontaneous
  Country: US (occurrence: None)
  Receive Date: 20230601
  Receipt Date: 20230601
  Transmission Date: 20230721
  Serious: Yes (Hospitalization)
  Sender: FDA-Public Use
  Company Number: None

PATIENT
  Sex: Male

DRUGS (21)
  1. CAPECITABINE [Suspect]
     Active Substance: CAPECITABINE
     Indication: Rectal cancer
     Dosage: 3T BID : PO 14D ON/7D OFF?
     Route: 050
     Dates: start: 202301
  2. TYLENOL [Concomitant]
  3. VALTREX [Concomitant]
     Active Substance: VALACYCLOVIR HYDROCHLORIDE
  4. PLAVIX [Concomitant]
     Active Substance: CLOPIDOGREL BISULFATE
  5. ASPIRIN [Concomitant]
  6. ISOSORBIDE [Concomitant]
     Active Substance: ISOSORBIDE
  7. LOPRESSOR [Concomitant]
     Active Substance: METOPROLOL TARTRATE
  8. NORVASC [Concomitant]
     Active Substance: AMLODIPINE BESYLATE
  9. LIPITOR [Concomitant]
  10. NITROGLYCERIN [Concomitant]
  11. CITALOPRAM [Concomitant]
  12. TRAZODONE [Concomitant]
     Active Substance: TRAZODONE HYDROCHLORIDE
  13. ATORVASTATIN [Concomitant]
  14. BISMATROL [Concomitant]
  15. DOXAZOSIN [Concomitant]
  16. GAS-X [Concomitant]
     Active Substance: DIMETHICONE
  17. ONE DAILY MULTIVITAMIN [Concomitant]
  18. OMEPRAZOLE [Concomitant]
  19. TRIAMTERENE [Concomitant]
     Active Substance: TRIAMTERENE
  20. PEPTO-BISMOL [Concomitant]
  21. PROTONIX [Concomitant]

REACTIONS (3)
  - Myocardial infarction [None]
  - Chest discomfort [None]
  - Dyspepsia [None]
